FAERS Safety Report 9829973 (Version 2)
Quarter: 2014Q1

REPORT INFORMATION
  Report Type: Spontaneous
  Country: US (occurrence: US)
  Receive Date: 20140120
  Receipt Date: 20140120
  Transmission Date: 20141002
  Serious: Yes (Disabling)
  Sender: FDA-Public Use
  Company Number: US-GE HEALTHCARE MEDICAL DIAGNOSTICS-OSCN-PR-0802S-0069

PATIENT
  Age: 58 Year
  Sex: Male

DRUGS (5)
  1. OMNISCAN [Suspect]
     Indication: INTRASPINAL ABSCESS
     Route: 042
     Dates: start: 20060910, end: 20060910
  2. OMNISCAN [Suspect]
     Indication: OSTEOMYELITIS
     Route: 042
     Dates: start: 20060927, end: 20060927
  3. OMNISCAN [Suspect]
     Indication: HEADACHE
     Route: 042
     Dates: start: 20061103, end: 20061103
  4. PROHANCE [Suspect]
     Indication: EXTRADURAL ABSCESS
     Dates: start: 20060909, end: 20060909
  5. OMNIPAQUE [Concomitant]
     Indication: PRODUCT USED FOR UNKNOWN INDICATION
     Dates: start: 20060913, end: 20060913

REACTIONS (1)
  - Nephrogenic systemic fibrosis [Recovering/Resolving]
